FAERS Safety Report 4825651-1 (Version None)
Quarter: 2005Q4

REPORT INFORMATION
  Report Type: 
  Country: None (occurrence: None)
  Receive Date: 20051111
  Receipt Date: 20051104
  Transmission Date: 20060501
  Serious: Yes (Hospitalization)
  Sender: FDA-Public Use
  Company Number: GB-AVENTIS-200519757GDDC

PATIENT
  Age: 77 Year
  Sex: Female

DRUGS (2)
  1. LANTUS [Suspect]
     Indication: DIABETES MELLITUS
     Dates: end: 20051024
  2. METFORMIN [Concomitant]

REACTIONS (7)
  - ABASIA [None]
  - ARTHRITIS [None]
  - DIARRHOEA [None]
  - DRUG DOSE OMISSION [None]
  - DYSGEUSIA [None]
  - OEDEMA PERIPHERAL [None]
  - PAIN IN EXTREMITY [None]
